FAERS Safety Report 13230250 (Version 3)
Quarter: 2017Q1

REPORT INFORMATION
  Report Type: Report from Study
  Country: FI (occurrence: FI)
  Receive Date: 20170214
  Receipt Date: 20170227
  Transmission Date: 20170428
  Serious: Yes (Death, Life-Threatening, Hospitalization)
  Sender: FDA-Public Use
  Company Number: PHHO2016FI011779

PATIENT
  Age: 67 Year
  Sex: Male
  Weight: 73.4 kg

DRUGS (24)
  1. REVATIO [Concomitant]
     Active Substance: SILDENAFIL CITRATE
     Indication: PULMONARY HYPERTENSION
     Dosage: 10 MG, TID
     Route: 048
     Dates: start: 201606, end: 2016
  2. THYROXIN [Concomitant]
     Active Substance: LEVOTHYROXINE
     Indication: HYPOTHYROIDISM
     Dosage: 100 MG, QD
     Route: 048
     Dates: start: 2013
  3. BISOPROLOL [Concomitant]
     Active Substance: BISOPROLOL
     Indication: CARDIAC FAILURE
     Dosage: UNK
     Route: 048
     Dates: start: 2006
  4. MIRTAZAPINE. [Concomitant]
     Active Substance: MIRTAZAPINE
     Dosage: 15 MG,QD
     Route: 048
  5. NOVORAPID [Concomitant]
     Active Substance: INSULIN ASPART
     Indication: DIABETES MELLITUS
     Dosage: UNK
     Route: 065
     Dates: start: 201606, end: 2016
  6. ARANESP [Concomitant]
     Active Substance: DARBEPOETIN ALFA
     Indication: NEPHROPATHY
     Dosage: 40 MG, QW
     Route: 058
     Dates: start: 201606, end: 2016
  7. COTRIM FORTE [Concomitant]
     Active Substance: SULFAMETHOXAZOLE\TRIMETHOPRIM
     Indication: PROPHYLAXIS
     Dosage: 1 DF (160/800 MG), QW2
     Route: 048
     Dates: start: 201606, end: 2016
  8. OPAMOX [Concomitant]
     Active Substance: OXAZEPAM
     Indication: SLEEP DISORDER
     Dosage: 15 MG, BID
     Route: 048
     Dates: start: 2016, end: 2016
  9. FURESIS [Concomitant]
     Active Substance: FUROSEMIDE
     Indication: CARDIAC FAILURE
     Dosage: 80 MG, BID
     Route: 048
     Dates: start: 20060303
  10. INNOHEP [Concomitant]
     Active Substance: TINZAPARIN SODIUM
     Indication: THROMBOSIS PROPHYLAXIS
     Dosage: 4500 IU, QD
     Route: 058
     Dates: start: 201606, end: 2016
  11. SERENACE [Concomitant]
     Active Substance: HALOPERIDOL
     Indication: SLEEP DISORDER
     Dosage: 1 MG, QD
     Route: 048
     Dates: start: 2016, end: 2016
  12. ENTRESTO [Suspect]
     Active Substance: SACUBITRIL\VALSARTAN
     Indication: CARDIAC FAILURE CHRONIC
     Dosage: 50 MG, BID
     Route: 048
     Dates: start: 20150806, end: 2016
  13. SPIRESIS [Concomitant]
     Active Substance: SPIRONOLACTONE
     Indication: CARDIAC FAILURE
     Dosage: 12.5 MG, QD
     Route: 048
     Dates: start: 20060303
  14. MIRTAZAPINE. [Concomitant]
     Active Substance: MIRTAZAPINE
     Indication: DEPRESSION
     Dosage: 30 MG, QD
     Route: 048
     Dates: start: 2015, end: 2016
  15. IPRAMOL [Concomitant]
     Active Substance: ALBUTEROL SULFATE\IPRATROPIUM BROMIDE
     Indication: BRONCHIAL HYPERREACTIVITY
     Dosage: 2.5 MG, QID
     Route: 055
     Dates: start: 201606, end: 2016
  16. SIMDAX [Concomitant]
     Active Substance: LEVOSIMENDAN
     Indication: CARDIAC FAILURE
     Dosage: UNK
     Route: 065
     Dates: start: 201505
  17. VALCYTE [Concomitant]
     Active Substance: VALGANCICLOVIR HYDROCHLORIDE
     Indication: PROPHYLAXIS
     Dosage: 900 MG, QOD
     Route: 048
     Dates: start: 201606, end: 2016
  18. PREDNISOLON [Suspect]
     Active Substance: PREDNISOLONE
     Indication: IMMUNOSUPPRESSION
     Dosage: 10 MG, QD
     Route: 048
     Dates: start: 20160606
  19. MAREVAN [Concomitant]
     Active Substance: WARFARIN SODIUM
     Indication: PROPHYLAXIS
     Dosage: 5 MG, QD
     Route: 065
     Dates: start: 20060303
  20. NORSPAN [Concomitant]
     Active Substance: BUPRENORPHINE
     Indication: PAIN
     Dosage: 20 MG, QW
     Route: 062
     Dates: start: 2016, end: 2016
  21. SANDIMMUN NEORAL [Suspect]
     Active Substance: CYCLOSPORINE
     Indication: IMMUNOSUPPRESSION
     Dosage: 100 MG, BID
     Route: 048
     Dates: start: 20160606
  22. CORDARONE [Concomitant]
     Active Substance: AMIODARONE HYDROCHLORIDE
     Indication: CARDIAC FAILURE
     Dosage: 100 MG, QD
     Route: 048
     Dates: start: 2012
  23. ICODEXTRIN [Concomitant]
     Active Substance: ICODEXTRIN
     Indication: NEPHROPATHY
     Dosage: 2000 ML, QD
     Route: 033
     Dates: start: 201606, end: 2016
  24. SIMVASTATIN. [Concomitant]
     Active Substance: SIMVASTATIN
     Indication: HYPERCHOLESTEROLAEMIA
     Dosage: 10 MG, QD
     Route: 048
     Dates: start: 201606, end: 2016

REACTIONS (3)
  - Cardiac failure [Not Recovered/Not Resolved]
  - Sepsis [Fatal]
  - Renal failure [Not Recovered/Not Resolved]

NARRATIVE: CASE EVENT DATE: 20160606
